FAERS Safety Report 4305109-9 (Version None)
Quarter: 2004Q1

REPORT INFORMATION
  Report Type: 
  Country: None (occurrence: None)
  Receive Date: 20040224
  Receipt Date: 20040224
  Transmission Date: 20041129
  Serious: Yes (Other)
  Sender: FDA-Public Use
  Company Number: None

PATIENT
  Age: 63 Year
  Sex: Male
  Weight: 51.3 kg

DRUGS (12)
  1. OXYCODONE [Suspect]
  2. HYDROMORPHONE HCL [Concomitant]
  3. FOSINOPRIL NA [Concomitant]
  4. OXYCODONE HCL [Concomitant]
  5. SIMVASTATIN [Concomitant]
  6. IPRATROPIUM BROMIDE [Concomitant]
  7. ALBUTEROL ORAL INH [Concomitant]
  8. CLOPIDOGREL BISULFATE [Concomitant]
  9. RANITIDINE HCL [Concomitant]
  10. DILTIAZEM [Concomitant]
  11. NITROGLYCERIN [Concomitant]
  12. PREDNISONE [Concomitant]

REACTIONS (1)
  - DIZZINESS [None]
